FAERS Safety Report 4917651-8 (Version None)
Quarter: 2006Q1

REPORT INFORMATION
  Report Type: 
  Country: None (occurrence: None)
  Receive Date: 20060221
  Receipt Date: 20060206
  Transmission Date: 20060701
  Serious: Yes (Life-Threatening, Hospitalization)
  Sender: FDA-Public Use
  Company Number: CHWYE369607FEB06

PATIENT
  Age: 70 Year
  Sex: Female
  Weight: 72 kg

DRUGS (5)
  1. ENBREL [Suspect]
     Indication: RHEUMATOID ARTHRITIS
     Route: 058
     Dates: start: 20010101, end: 20051107
  2. ENBREL [Suspect]
     Dosage: UNKNOWN
     Route: 058
     Dates: start: 20060127
  3. METHOTREXATE [Concomitant]
     Route: 048
     Dates: start: 19940101, end: 20000101
  4. SALAZOPYRIN [Concomitant]
     Route: 048
     Dates: start: 19910101, end: 19940101
  5. ARAVA [Concomitant]
     Route: 048
     Dates: start: 20000101, end: 20010501

REACTIONS (4)
  - BURSITIS [None]
  - HAEMODIALYSIS [None]
  - RENAL FAILURE ACUTE [None]
  - STAPHYLOCOCCAL SEPSIS [None]
